FAERS Safety Report 14481010 (Version 1)
Quarter: 2018Q1

REPORT INFORMATION
  Report Type: Report from Study
  Country: US (occurrence: US)
  Receive Date: 20180202
  Receipt Date: 20180202
  Transmission Date: 20180509
  Serious: Yes (Hospitalization)
  Sender: FDA-Public Use
  Company Number: US-ASTRAZENECA-2015SE70115

PATIENT
  Age: 26593 Day
  Sex: Male
  Weight: 68.7 kg

DRUGS (4)
  1. INCB024360 [Suspect]
     Active Substance: EPACADOSTAT
     Indication: PANCREATIC CARCINOMA
     Route: 048
     Dates: start: 20150618, end: 20150708
  2. MEDI4736 [Suspect]
     Active Substance: DURVALUMAB
     Indication: PANCREATIC CARCINOMA
     Route: 042
     Dates: start: 20150618, end: 20150702
  3. ASPIRIN. [Concomitant]
     Active Substance: ASPIRIN
     Dosage: 2000
     Route: 065
  4. FUROSEMIDE. [Concomitant]
     Active Substance: FUROSEMIDE
     Route: 065

REACTIONS (2)
  - Subarachnoid haemorrhage [Not Recovered/Not Resolved]
  - Fall [Not Recovered/Not Resolved]

NARRATIVE: CASE EVENT DATE: 20150708
